FAERS Safety Report 7042456-4 (Version None)
Quarter: 2010Q4

REPORT INFORMATION
  Report Type: 
  Country: None (occurrence: None)
  Receive Date: 20101013
  Receipt Date: 20100302
  Transmission Date: 20110411
  Serious: No
  Sender: FDA-Public Use
  Company Number: US-ASTRAZENECA-2010SE09064

PATIENT
  Age: 891 Month
  Sex: Male
  Weight: 100.7 kg

DRUGS (13)
  1. SYMBICORT [Suspect]
     Indication: PNEUMONIA
     Dosage: TWO PUFFS TWICE 160/4.5 MG
     Route: 055
     Dates: start: 20100216
  2. SYMBICORT [Suspect]
     Indication: BRONCHITIS
     Dosage: TWO PUFFS TWICE 160/4.5 MG
     Route: 055
     Dates: start: 20100216
  3. IMDUR [Concomitant]
  4. DIOVAN [Concomitant]
  5. ATENOLOL [Concomitant]
  6. NEXIUM [Concomitant]
  7. DIGOXIN [Concomitant]
  8. CRESTOR [Concomitant]
  9. PROSCAR [Concomitant]
  10. XOPENEX [Concomitant]
  11. IPRATROPIUM BROMIDE [Concomitant]
  12. ATARAX [Concomitant]
  13. COUMADIN [Concomitant]

REACTIONS (1)
  - URINARY RETENTION [None]
